FAERS Safety Report 12980045 (Version 1)
Quarter: 2016Q4

REPORT INFORMATION
  Report Type: Spontaneous
  Country: US (occurrence: US)
  Receive Date: 20161128
  Receipt Date: 20161128
  Transmission Date: 20170207
  Serious: No
  Sender: FDA-Public Use
  Company Number: US-WATSON-2015-26270

PATIENT
  Age: 77 Year
  Sex: Female

DRUGS (1)
  1. OXYCODONE HYDROCHLORIDE/ACETAMINOPHEN 5/325 (WATSON LABORATORIES) [Suspect]
     Active Substance: ACETAMINOPHEN\OXYCODONE HYDROCHLORIDE
     Indication: PAIN
     Dosage: UNK UNK, TID
     Route: 048
     Dates: start: 20151125

REACTIONS (2)
  - Drug ineffective [Unknown]
  - Product substitution issue [Unknown]

NARRATIVE: CASE EVENT DATE: 20151125
